FAERS Safety Report 23112127 (Version 3)
Quarter: 2023Q4

REPORT INFORMATION
  Report Type: Spontaneous
  Country: US (occurrence: US)
  Receive Date: 20231026
  Receipt Date: 20231117
  Transmission Date: 20240110
  Serious: No
  Sender: FDA-Public Use
  Company Number: US-Blueprint Medicines Corporation-SP-US-2023-001673

PATIENT
  Age: 56 Year
  Sex: Male

DRUGS (2)
  1. AYVAKIT [Suspect]
     Active Substance: AVAPRITINIB
     Indication: Indolent systemic mastocytosis
     Route: 048
     Dates: start: 20230701, end: 20231027
  2. SEROQUEL [Suspect]
     Active Substance: QUETIAPINE FUMARATE
     Indication: Insomnia
     Route: 065

REACTIONS (12)
  - Poor quality sleep [Not Recovered/Not Resolved]
  - Energy increased [Not Recovered/Not Resolved]
  - Anxiety [Recovering/Resolving]
  - Thinking abnormal [Not Recovered/Not Resolved]
  - Tension [Not Recovered/Not Resolved]
  - Paradoxical drug reaction [Not Recovered/Not Resolved]
  - Feeling abnormal [Not Recovered/Not Resolved]
  - Insomnia [Recovering/Resolving]
  - Periorbital swelling [Unknown]
  - Symptom recurrence [Not Recovered/Not Resolved]
  - Flushing [Not Recovered/Not Resolved]
  - Intentional dose omission [Unknown]

NARRATIVE: CASE EVENT DATE: 20231027
